FAERS Safety Report 13038050 (Version 1)
Quarter: 2016Q4

REPORT INFORMATION
  Report Type: Spontaneous
  Country: US (occurrence: US)
  Receive Date: 20161214
  Receipt Date: 20161214
  Transmission Date: 20170207
  Serious: Yes (Hospitalization, Disabling)
  Sender: FDA-Public Use
  Company Number: None

PATIENT
  Age: 35 Year
  Sex: Female
  Weight: 69.75 kg

DRUGS (7)
  1. EFFEXOR XR [Concomitant]
     Active Substance: VENLAFAXINE HYDROCHLORIDE
  2. LAMOTIGRINE [Suspect]
     Active Substance: LAMOTRIGINE
     Indication: ANXIETY
     Dosage: ?          QUANTITY:1.5 TABLET(S);?
     Route: 048
     Dates: start: 20150915, end: 20161207
  3. LAMOTIGRINE [Suspect]
     Active Substance: LAMOTRIGINE
     Indication: DEPRESSION
     Dosage: ?          QUANTITY:1.5 TABLET(S);?
     Route: 048
     Dates: start: 20150915, end: 20161207
  4. LAMOTIGRINE [Suspect]
     Active Substance: LAMOTRIGINE
     Indication: BIPOLAR DISORDER
     Dosage: ?          QUANTITY:1.5 TABLET(S);?
     Route: 048
     Dates: start: 20150915, end: 20161207
  5. LAMOTIGRINE [Suspect]
     Active Substance: LAMOTRIGINE
     Indication: MIGRAINE
     Dosage: ?          QUANTITY:1.5 TABLET(S);?
     Route: 048
     Dates: start: 20150915, end: 20161207
  6. TEGRETOL [Concomitant]
     Active Substance: CARBAMAZEPINE
  7. XANAX [Concomitant]
     Active Substance: ALPRAZOLAM

REACTIONS (2)
  - Pelvic pain [None]
  - Back pain [None]

NARRATIVE: CASE EVENT DATE: 20151229
